FAERS Safety Report 7226964-9 (Version None)
Quarter: 2011Q1

REPORT INFORMATION
  Report Type: 
  Country: None (occurrence: None)
  Receive Date: 20110114
  Receipt Date: 20110111
  Transmission Date: 20110831
  Serious: Yes (Other)
  Sender: FDA-Public Use
  Company Number: US-AMGEN-USASP2011001983

PATIENT

DRUGS (2)
  1. NPLATE [Suspect]
     Indication: IDIOPATHIC THROMBOCYTOPENIC PURPURA
     Dates: start: 20091009, end: 20100701
  2. PROMACTA [Concomitant]
     Indication: IDIOPATHIC THROMBOCYTOPENIC PURPURA
     Dosage: 12.5 MG, QWK
     Dates: start: 20100501

REACTIONS (4)
  - CONTUSION [None]
  - UPPER RESPIRATORY TRACT INFECTION [None]
  - PLATELET COUNT ABNORMAL [None]
  - PETECHIAE [None]
